FAERS Safety Report 11426060 (Version 1)
Quarter: 2015Q3

REPORT INFORMATION
  Report Type: Spontaneous
  Country: US (occurrence: US)
  Receive Date: 20150821
  Receipt Date: 20150821
  Transmission Date: 20151125
  Serious: No
  Sender: FDA-Public Use
  Company Number: US-ELI_LILLY_AND_COMPANY-US201302008689

PATIENT
  Sex: Male
  Weight: 95.5 kg

DRUGS (5)
  1. NIACIN. [Concomitant]
     Active Substance: NIACIN
     Dosage: UNK, UNKNOWN
  2. VITAMIN D2 [Concomitant]
     Active Substance: ERGOCALCIFEROL
     Dosage: UNK, UNKNOWN
  3. PRAVASTATIN SODIUM. [Concomitant]
     Active Substance: PRAVASTATIN SODIUM
     Dosage: 20 MG, QD
  4. CIALIS [Suspect]
     Active Substance: TADALAFIL
     Indication: ERECTILE DYSFUNCTION
     Dosage: 5 MG, QD
     Route: 048
     Dates: start: 20130204, end: 20130320
  5. SAW PALMETTO [Concomitant]
     Active Substance: SAW PALMETTO
     Dosage: UNK, UNKNOWN

REACTIONS (2)
  - Insomnia [Recovered/Resolved]
  - Myalgia [Recovered/Resolved]
